FAERS Safety Report 16927651 (Version 2)
Quarter: 2019Q4

REPORT INFORMATION
  Report Type: Spontaneous
  Country: US (occurrence: US)
  Receive Date: 20191016
  Receipt Date: 20191030
  Transmission Date: 20200122
  Serious: Yes (Hospitalization)
  Sender: FDA-Public Use
  Company Number: US-CELLTRION INC.-2019US023516

PATIENT

DRUGS (4)
  1. REMICADE [Suspect]
     Active Substance: INFLIXIMAB
     Indication: PRODUCT USED FOR UNKNOWN INDICATION
     Dosage: UNK
  2. INFLECTRA [Suspect]
     Active Substance: INFLIXIMAB-DYYB
     Indication: CROHN^S DISEASE
     Dosage: 200MG DOSE, EQUIVALENT TO 5MG/KG, IV INFUSION EVERY TWO WEEKS
     Route: 042
     Dates: start: 20190716
  3. INFLECTRA [Suspect]
     Active Substance: INFLIXIMAB-DYYB
     Dosage: 200MG IN NS 250 ML
     Route: 042
     Dates: start: 20190730
  4. ELIQUIS [Concomitant]
     Active Substance: APIXABAN
     Indication: DEEP VEIN THROMBOSIS
     Dosage: UNK

REACTIONS (29)
  - Abdominal distension [Unknown]
  - Venous occlusion [Unknown]
  - Protein total decreased [Unknown]
  - Mean cell volume decreased [Unknown]
  - Nausea [Recovered/Resolved]
  - Wheezing [Recovered/Resolved]
  - Malnutrition [Unknown]
  - Hypokalaemia [Unknown]
  - Haematocrit decreased [Unknown]
  - Vomiting [Recovered/Resolved]
  - Pain [Unknown]
  - Anion gap decreased [Unknown]
  - Hypotension [Recovering/Resolving]
  - Prothrombin time prolonged [Unknown]
  - Haemoglobin decreased [Unknown]
  - Blood glucose increased [Unknown]
  - Chills [Recovered/Resolved]
  - Hypomagnesaemia [Unknown]
  - Electrocardiogram ST segment elevation [Unknown]
  - Rash [Recovered/Resolved]
  - Chest pain [Unknown]
  - Urticaria [Recovering/Resolving]
  - Crohn^s disease [Unknown]
  - International normalised ratio increased [Unknown]
  - Blood creatine phosphokinase decreased [Unknown]
  - Erythema [Recovering/Resolving]
  - Tachycardia [Recovered/Resolved]
  - Intestinal obstruction [Recovered/Resolved]
  - Hyperkalaemia [Recovered/Resolved]

NARRATIVE: CASE EVENT DATE: 20190730
